FAERS Safety Report 11938129 (Version 1)
Quarter: 2016Q1

REPORT INFORMATION
  Report Type: Spontaneous
  Country: US (occurrence: None)
  Receive Date: 20160120
  Receipt Date: 20160120
  Transmission Date: 20160526
  Serious: No
  Sender: FDA-Public Use
  Company Number: None

PATIENT
  Age: 56 Year
  Sex: Female

DRUGS (2)
  1. LETROZOLE 2.5MG TAB TEVA [Concomitant]
     Active Substance: LETROZOLE
  2. IBRANCE [Suspect]
     Active Substance: PALBOCICLIB
     Indication: NEOPLASM MALIGNANT
     Dosage: 125 MG CAP QD X21D THEN 7D OFF PO
     Route: 048
     Dates: start: 20150113

REACTIONS (2)
  - Arthralgia [None]
  - Nausea [None]

NARRATIVE: CASE EVENT DATE: 20150113
